FAERS Safety Report 8281887-1 (Version None)
Quarter: 2012Q2

REPORT INFORMATION
  Report Type: 
  Country: None (occurrence: None)
  Receive Date: 20120413
  Receipt Date: 20120403
  Transmission Date: 20120825
  Serious: Yes (Other)
  Sender: FDA-Public Use
  Company Number: FR-JNJFOC-20120405183

PATIENT
  Sex: Female

DRUGS (2)
  1. RIVAROXABAN [Suspect]
     Indication: KNEE ARTHROPLASTY
     Route: 048
     Dates: start: 20120101, end: 20120101
  2. NSAID [Concomitant]

REACTIONS (2)
  - HAEMOGLOBIN DECREASED [None]
  - PROCEDURAL HAEMORRHAGE [None]
